FAERS Safety Report 6061666-6 (Version None)
Quarter: 2009Q1

REPORT INFORMATION
  Report Type: 
  Country: None (occurrence: None)
  Receive Date: 20090202
  Receipt Date: 20090127
  Transmission Date: 20090719
  Serious: Yes (Death)
  Sender: FDA-Public Use
  Company Number: B0556393A

PATIENT

DRUGS (2)
  1. ROSIGLITAZONE [Suspect]
     Route: 048
  2. SULPHONYLUREA [Concomitant]
     Route: 048

REACTIONS (1)
  - DEATH [None]
